FAERS Safety Report 8150606-1 (Version None)
Quarter: 2012Q1

REPORT INFORMATION
  Report Type: 
  Country: None (occurrence: None)
  Receive Date: 20120220
  Receipt Date: 20120209
  Transmission Date: 20120608
  Serious: Yes (Other)
  Sender: FDA-Public Use
  Company Number: PHHY2012DE013274

PATIENT

DRUGS (4)
  1. URSODIOL [Concomitant]
     Dosage: UNK UKN, UNK
     Route: 064
  2. PREDNISONE [Concomitant]
     Dosage: UNK UKN, UNK
     Route: 064
  3. CYCLOSPORINE [Suspect]
     Dosage: UNK UKN, UNK
     Route: 064
  4. MYCOPHENOLATE MOFETIL [Suspect]
     Indication: LIVER TRANSPLANT
     Dosage: MARTERNAL DOSE: 1G/DAY
     Route: 064

REACTIONS (4)
  - ATRIAL SEPTAL DEFECT [None]
  - FOETAL EXPOSURE DURING PREGNANCY [None]
  - PREMATURE BABY [None]
  - NERVOUS SYSTEM DISORDER [None]
